FAERS Safety Report 4695085-1 (Version None)
Quarter: 2005Q2

REPORT INFORMATION
  Report Type: 
  Country: None (occurrence: None)
  Receive Date: 20050617
  Receipt Date: 20050606
  Transmission Date: 20051028
  Serious: Yes (Other)
  Sender: FDA-Public Use
  Company Number: 2005058471

PATIENT
  Age: 20 Year
  Sex: Male

DRUGS (2)
  1. BEXTRA [Suspect]
     Indication: TOOTH EXTRACTION
     Dosage: ORAL
     Route: 048
     Dates: start: 20040901, end: 20040901
  2. AMOXICILLIN [Suspect]
     Indication: TOOTH EXTRACTION
     Dates: start: 20040901

REACTIONS (1)
  - RASH GENERALISED [None]
